FAERS Safety Report 25144770 (Version 1)
Quarter: 2025Q2

REPORT INFORMATION
  Report Type: Report from Study
  Country: IN (occurrence: IN)
  Receive Date: 20250401
  Receipt Date: 20250401
  Transmission Date: 20250717
  Serious: Yes (Other)
  Sender: ROCHE
  Company Number: IN-002147023-NVSC2025IN052248

PATIENT
  Sex: Female

DRUGS (1)
  1. RANIBIZUMAB [Suspect]
     Active Substance: RANIBIZUMAB
     Indication: Neovascular age-related macular degeneration
     Route: 050
     Dates: start: 20230606

REACTIONS (5)
  - Choroidal neovascularisation [Unknown]
  - Retinal haemorrhage [Unknown]
  - Retinal oedema [Unknown]
  - Posterior capsule opacification [Unknown]
  - Retinal depigmentation [Unknown]
